FAERS Safety Report 8962412 (Version 1)
Quarter: 2012Q4

REPORT INFORMATION
  Report Type: Report from Study
  Country: DK (occurrence: DK)
  Receive Date: 20121213
  Receipt Date: 20121213
  Transmission Date: 20130627
  Serious: Yes (Death, Life-Threatening, Hospitalization)
  Sender: FDA-Public Use
  Company Number: DK-BRISTOL-MYERS SQUIBB COMPANY-17184508

PATIENT
  Age: 30 Year
  Sex: Female

DRUGS (10)
  1. CETUXIMAB [Suspect]
     Indication: MALIGNANT GLIOMA
     Route: 042
     Dates: start: 20071011, end: 20081030
  2. BEVACIZUMAB [Suspect]
     Indication: MALIGNANT GLIOMA
     Route: 042
     Dates: start: 20071011, end: 20081030
  3. IRINOTECAN HCL [Suspect]
     Indication: MALIGNANT GLIOMA
     Route: 042
     Dates: start: 20071011, end: 20081030
  4. OXYNORM [Concomitant]
     Dosage: Total daily dose 5mg PN
  5. MORPHINE SULFATE [Concomitant]
     Dosage: Total daily dose /unit 5mg PN
  6. IRON [Concomitant]
  7. MULTIVITAMIN [Concomitant]
  8. FRAGMIN [Concomitant]
     Dosage: 1DF:500 IE
  9. PANODIL [Concomitant]
  10. OXYCONTIN [Concomitant]

REACTIONS (5)
  - Cerebral infarction [Fatal]
  - Respiratory distress [Recovered/Resolved]
  - Fall [Unknown]
  - Femoral neck fracture [Recovered/Resolved with Sequelae]
  - Erysipelas [Unknown]
